FAERS Safety Report 23340487 (Version 1)
Quarter: 2023Q4

REPORT INFORMATION
  Report Type: Spontaneous
  Country: JP (occurrence: JP)
  Receive Date: 20231227
  Receipt Date: 20231227
  Transmission Date: 20240110
  Serious: Yes (Hospitalization, Other)
  Sender: FDA-Public Use
  Company Number: A202300617

PATIENT
  Age: 82 Year
  Sex: Male

DRUGS (3)
  1. INSULIN GLARGINE [Suspect]
     Active Substance: INSULIN GLARGINE
     Indication: Type 2 diabetes mellitus
     Dosage: 10 INTERNATIONAL UNIT, QD
  2. INSULIN ASPART [Suspect]
     Active Substance: INSULIN ASPART
     Indication: Type 2 diabetes mellitus
     Dosage: 9 IU (INTERNATIONAL UNIT)/ DAY
     Route: 058
  3. INSULIN ASPART [Suspect]
     Active Substance: INSULIN ASPART
     Dosage: 11 IU (INTERNATIONAL UNIT)/ DAY
     Route: 058

REACTIONS (2)
  - Cerebral infarction [Unknown]
  - Hypoglycaemia [Recovering/Resolving]
